FAERS Safety Report 8431690-4 (Version None)
Quarter: 2012Q2

REPORT INFORMATION
  Report Type: 
  Country: None (occurrence: None)
  Receive Date: 20120613
  Receipt Date: 20120605
  Transmission Date: 20120825
  Serious: Yes (Other)
  Sender: FDA-Public Use
  Company Number: US-JNJFOC-20120602938

PATIENT
  Sex: Female
  Weight: 65.77 kg

DRUGS (7)
  1. ULTRAM [Suspect]
     Indication: PRODUCT USED FOR UNKNOWN INDICATION
     Route: 065
  2. NAPROXEN [Concomitant]
     Indication: PAIN
     Route: 065
  3. BACLOFEN [Concomitant]
     Indication: PAIN
     Route: 065
  4. CHANTIX [Suspect]
     Indication: EX-TOBACCO USER
     Route: 065
     Dates: start: 20120517
  5. AN UNKNOWN MEDICATION [Suspect]
     Indication: PRODUCT USED FOR UNKNOWN INDICATION
     Route: 065
  6. REMERON [Concomitant]
     Indication: PRODUCT USED FOR UNKNOWN INDICATION
     Route: 065
  7. CYMBALTA [Concomitant]
     Indication: DEPRESSION
     Route: 065

REACTIONS (3)
  - OEDEMA PERIPHERAL [None]
  - NAUSEA [None]
  - HYPERSENSITIVITY [None]
